FAERS Safety Report 17938560 (Version 2)
Quarter: 2021Q1

REPORT INFORMATION
  Report Type: Report from Study
  Country: None (occurrence: US)
  Receive Date: 20200625
  Receipt Date: 20210210
  Transmission Date: 20210419
  Serious: Yes (Other)
  Sender: FDA-Public Use
  Company Number: US-ABBVIE-20K-163-3455494-00

PATIENT
  Sex: Male
  Weight: 127.12 kg

DRUGS (1)
  1. MAVYRET [Suspect]
     Active Substance: GLECAPREVIR\PIBRENTASVIR
     Indication: HEPATITIS C
     Route: 048
     Dates: start: 20180116, end: 20180416

REACTIONS (4)
  - Musculoskeletal stiffness [Unknown]
  - Energy increased [Unknown]
  - Arthritis infective [Unknown]
  - Dry mouth [Unknown]
